FAERS Safety Report 20091600 (Version 1)
Quarter: 2021Q4

REPORT INFORMATION
  Report Type: Report from Study
  Country: BE (occurrence: BE)
  Receive Date: 20211119
  Receipt Date: 20211119
  Transmission Date: 20220303
  Serious: Yes (Hospitalization)
  Sender: FDA-Public Use
  Company Number: BE-NOVARTISPH-NVSC2021BE264351

PATIENT
  Age: 53 Year
  Sex: Male

DRUGS (5)
  1. NILOTINIB [Suspect]
     Active Substance: NILOTINIB
     Indication: Philadelphia positive acute lymphocytic leukaemia
     Dosage: 600 MG
     Route: 048
     Dates: start: 20210524
  2. CYTARABINE [Suspect]
     Active Substance: CYTARABINE
     Indication: Product used for unknown indication
     Dosage: 3 G
     Route: 042
     Dates: start: 20210903, end: 20210903
  3. CYTARABINE [Suspect]
     Active Substance: CYTARABINE
     Dosage: 6 G
     Route: 042
     Dates: start: 20210904, end: 20210904
  4. CYTARABINE [Suspect]
     Active Substance: CYTARABINE
     Dosage: 3 G
     Route: 042
     Dates: start: 20210905, end: 20210905
  5. CYTARABINE [Suspect]
     Active Substance: CYTARABINE
     Dosage: 40 MG
     Route: 042
     Dates: start: 20210910, end: 20210910

REACTIONS (1)
  - Febrile neutropenia [Not Recovered/Not Resolved]

NARRATIVE: CASE EVENT DATE: 20210917
